FAERS Safety Report 10230233 (Version 1)
Quarter: 2014Q2

REPORT INFORMATION
  Report Type: Spontaneous
  Country: US (occurrence: None)
  Receive Date: 20140506
  Receipt Date: 20140506
  Transmission Date: 20141212
  Serious: Yes (Other)
  Sender: FDA-Public Use
  Company Number: 1329326

PATIENT
  Age: 60 Year
  Sex: Male

DRUGS (1)
  1. AVASTIN (BEVACIZUMAB) [Suspect]
     Indication: GLIOBLASTOMA MULTIFORME
     Dosage: 3 DOSES, UNKNOWN

REACTIONS (1)
  - Thrombocytopenia [None]
